FAERS Safety Report 8990311 (Version 2)
Quarter: 2013Q1

REPORT INFORMATION
  Report Type: Spontaneous
  Country: CO (occurrence: CO)
  Receive Date: 20121228
  Receipt Date: 20130121
  Transmission Date: 20140127
  Serious: Yes (Other)
  Sender: FDA-Public Use
  Company Number: CO-AMGEN-COLSP2012083589

PATIENT
  Age: 48 Year
  Sex: Female

DRUGS (4)
  1. ENBREL [Suspect]
     Indication: RHEUMATOID ARTHRITIS
     Dosage: 50 MG, WEEKLY
     Route: 058
     Dates: start: 2009, end: 20121205
  2. ENBREL [Suspect]
     Dosage: 50 MG, WEEKLY
     Route: 058
     Dates: start: 20121212
  3. LEFLUNOMIDE [Concomitant]
     Indication: RHEUMATOID ARTHRITIS
     Dosage: UNK
  4. OMEPRAZOL                          /00661201/ [Concomitant]
     Dosage: UNK

REACTIONS (6)
  - Vertigo [Not Recovered/Not Resolved]
  - Platelet count decreased [Unknown]
  - Arthralgia [Unknown]
  - Influenza [Not Recovered/Not Resolved]
  - Injection site pain [Unknown]
  - Sinusitis [Not Recovered/Not Resolved]
